FAERS Safety Report 9515476 (Version 1)
Quarter: 2013Q1

REPORT INFORMATION
  Report Type: Spontaneous
  Country: US (occurrence: None)
  Receive Date: 20130305
  Receipt Date: 20130305
  Transmission Date: 20140127
  Serious: Yes (Other)
  Sender: FDA-Public Use
  Company Number: 163-21880-12112585

PATIENT
  Age: 89 Year
  Sex: Female

DRUGS (7)
  1. REVLIMID [Suspect]
     Indication: PLASMA CELL MYELOMA
     Dosage: 10 MG, 28 IN 28 D, PO
     Route: 048
     Dates: start: 20111228
  2. DEXAMETHASONE (DEXAMETHASONE) (UNKNOWN) [Concomitant]
  3. THYROXINE (UNKNOWN) [Concomitant]
  4. METOPROLOL (METOPROLOL) (UNKNOWN)? [Concomitant]
  5. PAXIL (PAROXETINE HYDROCHLORIDE) (UNKNOWN) [Concomitant]
  6. QUINIPRIL (UNKNOWN) [Concomitant]
  7. VELCADE (UNKNOWN) [Concomitant]

REACTIONS (2)
  - Spinal compression fracture [None]
  - Nasopharyngitis [None]
